FAERS Safety Report 8159988-8 (Version None)
Quarter: 2012Q1

REPORT INFORMATION
  Report Type: 
  Country: None (occurrence: None)
  Receive Date: 20120223
  Receipt Date: 20120217
  Transmission Date: 20120608
  Serious: Yes (Hospitalization)
  Sender: FDA-Public Use
  Company Number: US-GLAXOSMITHKLINE-A0958720A

PATIENT
  Sex: Male

DRUGS (2)
  1. CONCURRENT MEDICATIONS [Concomitant]
  2. ALBUTEROL [Suspect]
     Indication: CHRONIC OBSTRUCTIVE PULMONARY DISEASE
     Route: 065

REACTIONS (6)
  - PNEUMONIA [None]
  - RESPIRATORY DISTRESS [None]
  - PAINFUL RESPIRATION [None]
  - FEAR [None]
  - DYSPNOEA [None]
  - CHRONIC OBSTRUCTIVE PULMONARY DISEASE [None]
